FAERS Safety Report 8469694-8 (Version None)
Quarter: 2012Q2

REPORT INFORMATION
  Report Type: 
  Country: None (occurrence: None)
  Receive Date: 20120626
  Receipt Date: 20120620
  Transmission Date: 20120825
  Serious: Yes (Life-Threatening, Hospitalization)
  Sender: FDA-Public Use
  Company Number: DE-ELI_LILLY_AND_COMPANY-DE201206006482

PATIENT
  Age: 77 Year
  Sex: Female

DRUGS (1)
  1. BYDUREON [Suspect]
     Indication: DIABETES MELLITUS
     Dosage: 2 MG, WEEKLY (1/W)
     Dates: start: 20120301

REACTIONS (2)
  - ATRIAL FIBRILLATION [None]
  - FEELING ABNORMAL [None]
